FAERS Safety Report 7084588 (Version 4)
Quarter: 2013Q2

REPORT INFORMATION
  Report Type: Spontaneous
  Country: US (occurrence: US)
  Receive Date: 20090818
  Receipt Date: 20130617
  Transmission Date: 20140414
  Serious: Yes (Other)
  Sender: FDA-Public Use
  Company Number: US-JNJFOC-20090705343

PATIENT
  Age: 33 Year
  Sex: Female
  Weight: 69.85 kg

DRUGS (9)
  1. ORTHO EVRA [Suspect]
     Indication: CONTRACEPTION
     Route: 062
  2. PLAVIX [Suspect]
     Indication: CEREBROVASCULAR ACCIDENT
     Route: 065
     Dates: start: 20070320, end: 20080906
  3. ASPIRIN [Suspect]
     Indication: CEREBROVASCULAR ACCIDENT
     Dosage: ^5 GR TAP^
     Route: 065
     Dates: start: 20070320
  4. EFFEXOR XR [Concomitant]
     Indication: ANXIETY
     Route: 065
     Dates: start: 20080325
  5. EFFEXOR XR [Concomitant]
     Indication: DEPRESSION
     Route: 065
     Dates: start: 20080325
  6. LYRICA [Concomitant]
     Indication: PAIN
     Route: 065
  7. LYRICA [Concomitant]
     Indication: PAIN
     Route: 065
     Dates: start: 20080325
  8. PROPOXYPHENE N [Concomitant]
     Indication: PAIN
     Route: 065
     Dates: start: 20080325
  9. TYLENOL [Concomitant]

REACTIONS (8)
  - Cerebrovascular accident [Not Recovered/Not Resolved]
  - Thrombosis [Unknown]
  - Nasal sinus cancer [Unknown]
  - Dyspnoea [Not Recovered/Not Resolved]
  - Epistaxis [Unknown]
  - Helicobacter test positive [Unknown]
  - Skin discolouration [Unknown]
  - Dizziness [Not Recovered/Not Resolved]
